FAERS Safety Report 7688097-7 (Version None)
Quarter: 2011Q3

REPORT INFORMATION
  Report Type: 
  Country: None (occurrence: None)
  Receive Date: 20110817
  Receipt Date: 20110803
  Transmission Date: 20111222
  Serious: No
  Sender: FDA-Public Use
  Company Number: US-B.I. PHARMACEUTICALS,INC./RIDGEFIELD-2011-BP-15768BP

PATIENT
  Age: 72 Year
  Sex: Female

DRUGS (7)
  1. NEURONTIN [Concomitant]
     Indication: PAIN
     Route: 048
  2. CALCIUM CARBONATE [Concomitant]
     Indication: SUPPLEMENTATION THERAPY
     Route: 048
  3. ASPIRIN [Concomitant]
     Indication: PROPHYLAXIS
     Route: 048
  4. INDERAL [Concomitant]
     Indication: HYPERTENSION
     Route: 048
  5. COMBIVENT [Suspect]
     Indication: ASTHMA
     Dosage: 6 PUF
     Route: 055
     Dates: start: 20110617
  6. HAIR SKIN NAILS VIT [Concomitant]
     Indication: SUPPLEMENTATION THERAPY
     Route: 048
  7. FISH OIL [Concomitant]
     Indication: SUPPLEMENTATION THERAPY
     Route: 048

REACTIONS (1)
  - FLUSHING [None]
